FAERS Safety Report 6825928-4 (Version None)
Quarter: 2010Q3

REPORT INFORMATION
  Report Type: 
  Country: None (occurrence: None)
  Receive Date: 20100709
  Receipt Date: 20100701
  Transmission Date: 20110219
  Serious: Yes (Other)
  Sender: FDA-Public Use
  Company Number: US-ASTRAZENECA-2007UW19201

PATIENT
  Age: 41 Year
  Sex: Female
  Weight: 124.7 kg

DRUGS (12)
  1. SEROQUEL [Suspect]
     Indication: ANXIETY
     Dosage: 300 MG
     Route: 048
     Dates: start: 20010101, end: 20040101
  2. SEROQUEL [Suspect]
     Indication: SLEEP DISORDER
     Dosage: 300 MG
     Route: 048
     Dates: start: 20010101, end: 20040101
  3. SEROQUEL [Suspect]
     Dosage: 100-300 MG
     Route: 048
     Dates: start: 20010209, end: 20050124
  4. SEROQUEL [Suspect]
     Dosage: 100-300 MG
     Route: 048
     Dates: start: 20010209, end: 20050124
  5. SEROQUEL [Suspect]
     Route: 048
     Dates: start: 20030101, end: 20040101
  6. SEROQUEL [Suspect]
     Route: 048
     Dates: start: 20030101, end: 20040101
  7. SEROQUEL [Suspect]
     Dosage: 200-300 MG
     Route: 048
     Dates: start: 20030911, end: 20040409
  8. SEROQUEL [Suspect]
     Dosage: 200-300 MG
     Route: 048
     Dates: start: 20030911, end: 20040409
  9. ZOLOFT [Concomitant]
     Dosage: 100-200 MG
     Route: 048
     Dates: start: 20001014
  10. TRAZODONE [Concomitant]
     Indication: SLEEP DISORDER
     Dosage: 50-100 MG
     Route: 048
     Dates: start: 20030528
  11. BUPROPION HCL [Concomitant]
     Dosage: 100-200 MG
     Route: 048
     Dates: start: 20040406
  12. VISTARIL [Concomitant]
     Dosage: 25-50 MG
     Route: 048
     Dates: start: 20010324

REACTIONS (4)
  - INTERVERTEBRAL DISC DEGENERATION [None]
  - PULMONARY ARTERIAL HYPERTENSION [None]
  - RETINOPATHY [None]
  - TYPE 2 DIABETES MELLITUS [None]
